FAERS Safety Report 9949071 (Version 1)
Quarter: 2014Q1

REPORT INFORMATION
  Report Type: Spontaneous
  Country: FR (occurrence: FR)
  Receive Date: 20140304
  Receipt Date: 20140304
  Transmission Date: 20141002
  Serious: Yes (Other)
  Sender: FDA-Public Use
  Company Number: FR-ROCHE-1353496

PATIENT
  Sex: Female

DRUGS (6)
  1. PERJETA [Suspect]
     Indication: BREAST CANCER
     Route: 065
  2. HERCEPTIN [Suspect]
     Indication: BREAST CANCER
     Route: 065
  3. TAXOTERE [Suspect]
     Indication: BREAST CANCER
     Route: 065
  4. SOLU-MEDROL [Concomitant]
     Route: 065
  5. SOLU-MEDROL [Concomitant]
     Route: 065
  6. ZOPHREN [Concomitant]

REACTIONS (4)
  - Shock [Unknown]
  - Headache [Unknown]
  - Blood pressure abnormal [Unknown]
  - Oxygen saturation decreased [Unknown]
